FAERS Safety Report 7467452-4 (Version None)
Quarter: 2011Q2

REPORT INFORMATION
  Report Type: 
  Country: None (occurrence: None)
  Receive Date: 20110509
  Receipt Date: 20110429
  Transmission Date: 20111010
  Serious: Yes (Other)
  Sender: FDA-Public Use
  Company Number: US-ASTRAZENECA-2011SE10166

PATIENT
  Age: 58 Year
  Sex: Female
  Weight: 62.6 kg

DRUGS (3)
  1. FLU VACCINE [Concomitant]
  2. LISINOPRIL [Concomitant]
  3. SEROQUEL XR [Suspect]
     Indication: STRESS
     Route: 048
     Dates: start: 20090928, end: 20110427

REACTIONS (4)
  - SWELLING FACE [None]
  - SINUSITIS [None]
  - HEADACHE [None]
  - OROPHARYNGEAL PAIN [None]
